FAERS Safety Report 5622217-0 (Version None)
Quarter: 2008Q1

REPORT INFORMATION
  Report Type: 
  Country: None (occurrence: None)
  Receive Date: 20080206
  Receipt Date: 20080125
  Transmission Date: 20080703
  Serious: Yes (Death, Life-Threatening, Hospitalization)
  Sender: FDA-Public Use
  Company Number: RENA-1000027

PATIENT
  Age: 61 Year
  Sex: Male

DRUGS (1)
  1. RENAGEL [Suspect]
     Indication: HYPERPHOSPHATAEMIA
     Dosage: 2.4 G, TID, ORAL
     Route: 048
     Dates: start: 20070411, end: 20080104

REACTIONS (7)
  - ABDOMINAL DISTENSION [None]
  - CHOKING [None]
  - GASTRIC CANCER [None]
  - HAEMODYNAMIC INSTABILITY [None]
  - PNEUMONIA ASPIRATION [None]
  - RESPIRATORY FAILURE [None]
  - VOMITING [None]
